FAERS Safety Report 11934302 (Version 1)
Quarter: 2016Q1

REPORT INFORMATION
  Report Type: Spontaneous
  Country: US (occurrence: US)
  Receive Date: 20160121
  Receipt Date: 20160121
  Transmission Date: 20160526
  Serious: No
  Sender: FDA-Public Use
  Company Number: US-PERRIGO-15US004964

PATIENT
  Sex: Female

DRUGS (2)
  1. ACETAMINOPHEN\CAFFEINE\SALICYLATE [Suspect]
     Active Substance: ACETAMINOPHEN\CAFFEINE\SALICYLIC ACID
     Dosage: TOTAL OF 6 TABLETS IN 24 HOURS
     Route: 048
     Dates: start: 20150508, end: 20150509
  2. ACETAMINOPHEN\CAFFEINE\SALICYLATE [Suspect]
     Active Substance: ACETAMINOPHEN\CAFFEINE\SALICYLIC ACID
     Indication: MIGRAINE
     Dosage: 2 TABLETS, PRN
     Route: 048
     Dates: start: 201504, end: 201504

REACTIONS (2)
  - Drug effect decreased [Unknown]
  - Incorrect dose administered [Recovered/Resolved]

NARRATIVE: CASE EVENT DATE: 20150508
